FAERS Safety Report 16952165 (Version 3)
Quarter: 2019Q4

REPORT INFORMATION
  Report Type: Report from Study
  Country: CH (occurrence: CH)
  Receive Date: 20191023
  Receipt Date: 20191119
  Transmission Date: 20200122
  Serious: No
  Sender: FDA-Public Use
  Company Number: CH-BEH-2017083646

PATIENT

DRUGS (2)
  1. HIZENTRA [Suspect]
     Active Substance: HUMAN IMMUNOGLOBULIN G
     Dosage: 45 ML, QW 2 SITES OF INJ.
     Route: 065
  2. HIZENTRA [Suspect]
     Active Substance: HUMAN IMMUNOGLOBULIN G
     Dosage: 30 ML, QW 2 SITES OF INJECTION
     Route: 065

REACTIONS (14)
  - Abdominal pain upper [Unknown]
  - Skin reaction [Unknown]
  - Headache [Unknown]
  - Abdominal discomfort [Unknown]
  - Pyrexia [Unknown]
  - Nasopharyngitis [Unknown]
  - Diarrhoea [Unknown]
  - Injection site pain [Unknown]
  - Stress at work [Unknown]
  - Gastrointestinal disorder [Unknown]
  - Abdominal distension [Unknown]
  - Anxiety [Recovered/Resolved]
  - Synovial cyst [Unknown]
  - Injection site hypersensitivity [Unknown]
